FAERS Safety Report 12583457 (Version 1)
Quarter: 2016Q3

REPORT INFORMATION
  Report Type: Spontaneous
  Country: IL (occurrence: IL)
  Receive Date: 20160722
  Receipt Date: 20160722
  Transmission Date: 20161109
  Serious: Yes (Hospitalization, Other)
  Sender: FDA-Public Use
  Company Number: IL-ELI_LILLY_AND_COMPANY-IL201607004998

PATIENT
  Age: 59 Year
  Sex: Male
  Weight: 89 kg

DRUGS (6)
  1. TRULICITY [Suspect]
     Active Substance: DULAGLUTIDE
     Indication: TYPE 1 DIABETES MELLITUS
     Dosage: 1.5 MG, UNKNOWN
     Route: 065
  2. HUMALOG MIX50/50 [Suspect]
     Active Substance: INSULIN LISPRO
     Indication: PRODUCT USED FOR UNKNOWN INDICATION
     Dosage: 26 U, BID
     Route: 065
  3. MICROPIRIN [Concomitant]
     Active Substance: ASPIRIN
     Dosage: 75 MG, QD
     Route: 065
  4. CYMBALTA [Concomitant]
     Active Substance: DULOXETINE HYDROCHLORIDE
     Dosage: 30 MG, QD
     Route: 065
  5. CIPRALEX [Concomitant]
     Active Substance: ESCITALOPRAM OXALATE
     Dosage: 10 MG, BID
     Route: 065
  6. CRESTOR [Concomitant]
     Active Substance: ROSUVASTATIN CALCIUM
     Dosage: 10 MG, QD
     Route: 065

REACTIONS (6)
  - Diabetes mellitus inadequate control [Unknown]
  - Off label use [Recovered/Resolved]
  - Constipation [Unknown]
  - Drug intolerance [Unknown]
  - Acute kidney injury [Recovered/Resolved]
  - Blood glucose decreased [Unknown]

NARRATIVE: CASE EVENT DATE: 20160606
